FAERS Safety Report 16904416 (Version 1)
Quarter: 2019Q4

REPORT INFORMATION
  Report Type: Spontaneous
  Country: US (occurrence: US)
  Receive Date: 20190819
  Receipt Date: 20190819
  Transmission Date: 20200122
  Serious: No
  Sender: FDA-Public Use
  Company Number: None

PATIENT
  Age: 60 Year
  Sex: Female

DRUGS (1)
  1. MYCOPHENOLATE 500MG ASCEND LABORATORIES [Suspect]
     Active Substance: MYCOPHENOLIC ACID
     Indication: OVERLAP SYNDROME
     Route: 048
     Dates: start: 20190220, end: 20190601

REACTIONS (2)
  - Therapy cessation [None]
  - Diarrhoea [None]

NARRATIVE: CASE EVENT DATE: 20190801
